FAERS Safety Report 5092284-4 (Version None)
Quarter: 2006Q3

REPORT INFORMATION
  Report Type: 
  Country: None (occurrence: None)
  Receive Date: 20060829
  Receipt Date: 20060731
  Transmission Date: 20061208
  Serious: Yes (Disabling)
  Sender: FDA-Public Use
  Company Number: PH-MERCK-0608PHL00006

PATIENT
  Age: 52 Year
  Sex: Female

DRUGS (2)
  1. FOSAMAX [Suspect]
     Indication: OSTEOPOROSIS POSTMENOPAUSAL
     Route: 048
     Dates: start: 20050101, end: 20050101
  2. FOSAMAX [Suspect]
     Route: 048
     Dates: start: 20050101, end: 20050101

REACTIONS (3)
  - HEADACHE [None]
  - PAIN IN JAW [None]
  - TRISMUS [None]
